FAERS Safety Report 7285205-7 (Version None)
Quarter: 2011Q1

REPORT INFORMATION
  Report Type: 
  Country: None (occurrence: None)
  Receive Date: 20110210
  Receipt Date: 20110131
  Transmission Date: 20110831
  Serious: Yes (Other)
  Sender: FDA-Public Use
  Company Number: FR-JNJFOC-20110201996

PATIENT
  Age: 72 Year
  Sex: Male

DRUGS (3)
  1. MICONAZOLE [Suspect]
     Indication: ILL-DEFINED DISORDER
     Route: 065
  2. MICONAZOLE [Suspect]
     Route: 065
  3. DIHYDRAN(PHENYTOIN) [Interacting]
     Indication: ILL-DEFINED DISORDER
     Dosage: 4 YEARS
     Route: 065

REACTIONS (5)
  - DRUG INTERACTION [None]
  - CLONUS [None]
  - ATAXIA [None]
  - NYSTAGMUS [None]
  - ANTICONVULSANT DRUG LEVEL INCREASED [None]
